FAERS Safety Report 11787242 (Version 1)
Quarter: 2015Q4

REPORT INFORMATION
  Report Type: Spontaneous
  Country: DE (occurrence: DE)
  Receive Date: 20151130
  Receipt Date: 20151130
  Transmission Date: 20160305
  Serious: Yes (Disabling)
  Sender: FDA-Public Use
  Company Number: DE-WATSON-2015-16066

PATIENT
  Age: 34 Year
  Sex: Male

DRUGS (2)
  1. ANDROCUR [Concomitant]
     Active Substance: CYPROTERONE ACETATE
     Indication: PRODUCT USED FOR UNKNOWN INDICATION
  2. TRELSTAR [Suspect]
     Active Substance: TRIPTORELIN PAMOATE
     Indication: PARAPHILIA
     Dosage: 11.25 MG, 1 INJECTION EVERY 12 WEEKS
     Route: 030
     Dates: start: 20150320

REACTIONS (3)
  - Drug ineffective [Unknown]
  - Blood testosterone increased [Unknown]
  - Sexually inappropriate behaviour [Unknown]

NARRATIVE: CASE EVENT DATE: 201506
